FAERS Safety Report 8081513-0 (Version None)
Quarter: 2012Q1

REPORT INFORMATION
  Report Type: 
  Country: None (occurrence: None)
  Receive Date: 20120130
  Receipt Date: 20120120
  Transmission Date: 20120608
  Serious: Yes (Hospitalization)
  Sender: FDA-Public Use
  Company Number: AT-ROCHE-785671

PATIENT
  Sex: Female
  Weight: 62 kg

DRUGS (13)
  1. BENDAMUSTINE [Suspect]
     Indication: LYMPHOPLASMACYTOID LYMPHOMA/IMMUNOCYTOMA
     Dosage: DOSING FREQUENCY: D1 + D2
     Route: 042
  2. MABTHERA [Suspect]
     Indication: LYMPHOPLASMACYTOID LYMPHOMA/IMMUNOCYTOMA
     Dosage: DOSING FREQUENCY: D0
     Route: 042
  3. ASPIRIN [Concomitant]
     Dates: start: 20101201
  4. PANTOPRAZOLE SODIUM [Concomitant]
     Dates: start: 20110606
  5. CENIPRES [Concomitant]
     Dates: start: 20100101
  6. MOVIPREP [Concomitant]
     Dosage: 3 BAGS
     Dates: start: 20110701
  7. ENALAPRIL [Concomitant]
     Dates: end: 20110901
  8. CENIPRES [Concomitant]
     Dates: end: 20110901
  9. GUTTALAX [Concomitant]
     Dates: start: 20110720
  10. ENALAPRIL [Concomitant]
  11. CENIPRES [Concomitant]
     Dates: start: 20110901
  12. LEVOTHYROXINE SODIUM [Concomitant]
     Dates: start: 20100101
  13. METOCLOPRAMIDE HYDROCHLORIDE [Concomitant]
     Dates: start: 20110620

REACTIONS (4)
  - VENTRICULAR EXTRASYSTOLES [None]
  - TACHYCARDIA [None]
  - SWOLLEN TONGUE [None]
  - ATRIAL FIBRILLATION [None]
